FAERS Safety Report 24105784 (Version 2)
Quarter: 2024Q3

REPORT INFORMATION
  Report Type: Spontaneous
  Country: ES (occurrence: ES)
  Receive Date: 20240717
  Receipt Date: 20240920
  Transmission Date: 20241016
  Serious: Yes (Death, Hospitalization)
  Sender: SANDOZ
  Company Number: ES-ROCHE-3321805

PATIENT
  Age: 6 Year
  Sex: Female

DRUGS (4)
  1. ANAKINRA [Suspect]
     Active Substance: ANAKINRA
     Indication: Still^s disease
     Dosage: UNK
     Route: 065
  2. CANAKINUMAB [Suspect]
     Active Substance: CANAKINUMAB
     Indication: Still^s disease
     Dosage: UNK
     Route: 065
  3. METHOTREXATE [Suspect]
     Active Substance: METHOTREXATE
     Indication: Still^s disease
     Dosage: UNK
     Route: 065
  4. TOCILIZUMAB [Suspect]
     Active Substance: TOCILIZUMAB
     Indication: Still^s disease
     Dosage: UNK
     Route: 065

REACTIONS (20)
  - Cardio-respiratory arrest [Fatal]
  - Cor pulmonale acute [Fatal]
  - Pulmonary arterial hypertension [Fatal]
  - Pulmonary oedema [Fatal]
  - Cardiac dysfunction [Fatal]
  - Pulmonary veno-occlusive disease [Fatal]
  - Cough [Fatal]
  - Lung disorder [Fatal]
  - Pain in extremity [Fatal]
  - Hypothermia [Fatal]
  - Hypotension [Fatal]
  - Chest pain [Fatal]
  - Abdominal pain [Fatal]
  - Dyspnoea [Fatal]
  - Metabolic acidosis [Fatal]
  - Asthenia [Fatal]
  - Somnolence [Fatal]
  - Pallor [Fatal]
  - Cyanosis [Fatal]
  - Tachycardia [Fatal]
